FAERS Safety Report 6539403-8 (Version None)
Quarter: 2010Q1

REPORT INFORMATION
  Report Type: 
  Country: None (occurrence: None)
  Receive Date: 20100115
  Receipt Date: 20100111
  Transmission Date: 20100710
  Serious: Yes (Other)
  Sender: FDA-Public Use
  Company Number: US-JNJFOC-20100104647

PATIENT
  Age: 36 Year
  Sex: Male

DRUGS (2)
  1. PEPCID COMPLETE TROPICAL FRUIT FLAVOR [Suspect]
     Route: 048
  2. PEPCID COMPLETE TROPICAL FRUIT FLAVOR [Suspect]
     Indication: DYSPEPSIA
     Dosage: 1-2 CHEWABLE TABLETS DAILY AS NEEDED
     Route: 048

REACTIONS (1)
  - HAEMATOCHEZIA [None]
